FAERS Safety Report 6811041-9 (Version None)
Quarter: 2010Q2

REPORT INFORMATION
  Report Type: 
  Country: None (occurrence: None)
  Receive Date: 20100630
  Receipt Date: 20090109
  Transmission Date: 20101027
  Serious: No
  Sender: FDA-Public Use
  Company Number: US-PFIZER INC-2008160389

PATIENT
  Sex: Female

DRUGS (2)
  1. NICOTROL [Suspect]
     Indication: SMOKING CESSATION THERAPY
     Dosage: UNK
     Dates: start: 20080101
  2. OTHER RESPIRATORY SYSTEM PRODUCTS [Concomitant]

REACTIONS (6)
  - COUGH [None]
  - DYSPNOEA [None]
  - MALAISE [None]
  - OROPHARYNGEAL PAIN [None]
  - PLEURITIC PAIN [None]
  - THROAT IRRITATION [None]
